FAERS Safety Report 9725473 (Version 1)
Quarter: 2013Q4

REPORT INFORMATION
  Report Type: Spontaneous
  Country: US (occurrence: None)
  Receive Date: 20131202
  Receipt Date: 20131202
  Transmission Date: 20140711
  Serious: Yes (Life-Threatening, Hospitalization)
  Sender: FDA-Public Use
  Company Number: None

PATIENT
  Age: 42 Year
  Sex: Male
  Weight: 97.07 kg

DRUGS (1)
  1. DIHYDROERGOTAMINE [Suspect]
     Dosage: PREDNISONE PACK
     Route: 048

REACTIONS (3)
  - Atrioventricular block [None]
  - Blood cholesterol increased [None]
  - Angina pectoris [None]
